FAERS Safety Report 4723766-X (Version None)
Quarter: 2005Q3

REPORT INFORMATION
  Report Type: 
  Country: None (occurrence: None)
  Receive Date: 20050725
  Receipt Date: 20050719
  Transmission Date: 20060218
  Serious: Yes (Hospitalization)
  Sender: FDA-Public Use
  Company Number: US-JNJFOC-20050703915

PATIENT
  Sex: Female
  Weight: 86.18 kg

DRUGS (9)
  1. LEVAQUIN [Suspect]
     Indication: URINARY TRACT INFECTION
     Route: 048
  2. LEVAQUIN [Suspect]
     Indication: KIDNEY INFECTION
     Route: 048
  3. ATENOLOL [Concomitant]
     Route: 048
  4. ACTOS [Concomitant]
     Route: 048
  5. LISINOPRIL [Concomitant]
     Route: 048
  6. TRICOR [Concomitant]
     Route: 048
  7. ZETIA [Concomitant]
  8. DILTIAZEM [Concomitant]
     Route: 048
  9. COUMADIN [Concomitant]
     Indication: ANTICOAGULANT THERAPY
     Route: 048

REACTIONS (4)
  - ASTHENIA [None]
  - DEHYDRATION [None]
  - DIARRHOEA [None]
  - FALL [None]
